FAERS Safety Report 16762381 (Version 2)
Quarter: 2019Q4

REPORT INFORMATION
  Report Type: Spontaneous
  Country: CA (occurrence: CA)
  Receive Date: 20190831
  Receipt Date: 20191024
  Transmission Date: 20200122
  Serious: Yes (Other)
  Sender: FDA-Public Use
  Company Number: CA-TEVA-2019-CA-1099470

PATIENT
  Age: 50 Year
  Sex: Male
  Weight: 95 kg

DRUGS (38)
  1. STATEX (MORPHINE SULFATE) [Suspect]
     Active Substance: MORPHINE SULFATE
     Indication: PAIN
     Route: 048
  2. IMOVANE [Concomitant]
     Active Substance: ZOPICLONE
  3. INFLUENZA VACCINES [Concomitant]
     Active Substance: INFLUENZA VIRUS VACCINE
     Route: 030
  4. MORPHINE SULFATE. [Suspect]
     Active Substance: MORPHINE SULFATE
     Indication: PAIN
     Dosage: 120 MILLIGRAM DAILY;
     Route: 048
  5. ACETAMINOPHEN W/OXYCODONE [Suspect]
     Active Substance: ACETAMINOPHEN\OXYCODONE HYDROCHLORIDE
     Indication: BREAKTHROUGH PAIN
     Dosage: 8 DOSAGE FORMS DAILY;
     Route: 048
  6. AMITRIPTYLINE [Concomitant]
     Active Substance: AMITRIPTYLINE
     Dosage: 75 MILLIGRAM DAILY;
  7. CLONAZEPAM. [Concomitant]
     Active Substance: CLONAZEPAM
     Dosage: 3 MILLIGRAM DAILY;
  8. CLONAZEPAM. [Concomitant]
     Active Substance: CLONAZEPAM
  9. GRAVOL [Concomitant]
     Active Substance: DIMENHYDRINATE
  10. INFLUENZA VACCINES [Concomitant]
     Active Substance: INFLUENZA VIRUS VACCINE
     Route: 030
  11. ACETAMINOPHEN W/OXYCODONE [Suspect]
     Active Substance: ACETAMINOPHEN\OXYCODONE HYDROCHLORIDE
     Dosage: 64 DOSAGE FORMS DAILY;
     Route: 048
  12. OXYCONTIN [Suspect]
     Active Substance: OXYCODONE HYDROCHLORIDE
     Dosage: 80 MILLIGRAM DAILY; TABLET (EXTENDEDRELEASE)
     Route: 048
  13. ALPRAZOLAM. [Concomitant]
     Active Substance: ALPRAZOLAM
     Dosage: .25 MILLIGRAM DAILY;
  14. AMITRIPTYLINE [Concomitant]
     Active Substance: AMITRIPTYLINE
  15. AMITRIPTYLINE [Concomitant]
     Active Substance: AMITRIPTYLINE
  16. INFLUENZA VACCINES [Concomitant]
     Active Substance: INFLUENZA VIRUS VACCINE
     Route: 030
  17. INFLUENZA VACCINES [Concomitant]
     Active Substance: INFLUENZA VIRUS VACCINE
     Route: 030
  18. INFLUENZA VACCINES [Concomitant]
     Active Substance: INFLUENZA VIRUS VACCINE
     Route: 030
  19. MORPHINE SULFATE. [Suspect]
     Active Substance: MORPHINE SULFATE
     Dosage: 120 MILLIGRAM DAILY;
     Route: 048
  20. CODEINE/CODEINE SULFATE [Suspect]
     Active Substance: CODEINE SULFATE
     Indication: PRODUCT USED FOR UNKNOWN INDICATION
     Route: 065
  21. METHADONE [Suspect]
     Active Substance: METHADONE HYDROCHLORIDE
     Indication: DRUG DEPENDENCE
     Route: 048
  22. CEPHALEXIN MONOHYDRATE. [Concomitant]
     Active Substance: CEPHALEXIN MONOHYDRATE
     Dosage: 2000 MILLIGRAM DAILY;
  23. DEMEROL [Concomitant]
     Active Substance: MEPERIDINE HYDROCHLORIDE
  24. INFLUENZA VACCINES [Concomitant]
     Active Substance: INFLUENZA VIRUS VACCINE
     Route: 030
  25. COCAINE [Suspect]
     Active Substance: COCAINE
     Indication: PRODUCT USED FOR UNKNOWN INDICATION
     Route: 065
  26. ATIVAN [Concomitant]
     Active Substance: LORAZEPAM
  27. OXYCONTIN [Suspect]
     Active Substance: OXYCODONE HYDROCHLORIDE
     Indication: PAIN
     Dosage: 80 MILLIGRAM DAILY;
     Route: 048
  28. INFLUENZA VACCINES [Concomitant]
     Active Substance: INFLUENZA VIRUS VACCINE
     Route: 065
  29. PAROXETINE HYDROCHLORIDE. [Concomitant]
     Active Substance: PAROXETINE HYDROCHLORIDE
     Dosage: 10 MILLIGRAM DAILY;
  30. ALPRAZOLAM. [Concomitant]
     Active Substance: ALPRAZOLAM
     Dosage: .5 MILLIGRAM DAILY;
  31. CLONAZEPAM. [Concomitant]
     Active Substance: CLONAZEPAM
  32. CLONAZEPAM. [Concomitant]
     Active Substance: CLONAZEPAM
  33. PAROXETINE HYDROCHLORIDE. [Concomitant]
     Active Substance: PAROXETINE HYDROCHLORIDE
     Dosage: 20 MILLIGRAM DAILY;
  34. ZITHROMAX [Concomitant]
     Active Substance: AZITHROMYCIN DIHYDRATE
  35. MARIJUANA [Suspect]
     Active Substance: CANNABIS SATIVA SUBSP. INDICA TOP
     Indication: PRODUCT USED FOR UNKNOWN INDICATION
     Route: 055
  36. AMITRIPTYLINE [Concomitant]
     Active Substance: AMITRIPTYLINE
     Dosage: 150 MILLIGRAM DAILY;
  37. CIPRO [Concomitant]
     Active Substance: CIPROFLOXACIN HYDROCHLORIDE
  38. CLONAZEPAM. [Concomitant]
     Active Substance: CLONAZEPAM
     Dosage: 4 MILLIGRAM DAILY;

REACTIONS (18)
  - Drug withdrawal syndrome [Unknown]
  - Rhinorrhoea [Unknown]
  - Chest pain [Unknown]
  - Hyperhidrosis [Unknown]
  - Nausea [Unknown]
  - Night sweats [Unknown]
  - Alanine aminotransferase increased [Unknown]
  - Antisocial behaviour [Unknown]
  - Arthralgia [Unknown]
  - Vomiting [Unknown]
  - Abdominal pain [Unknown]
  - Drug dependence [Unknown]
  - Substance abuse [Unknown]
  - Depression [Unknown]
  - Aspartate aminotransferase increased [Unknown]
  - Blood albumin increased [Unknown]
  - Blood alkaline phosphatase increased [Unknown]
  - Insomnia [Unknown]
